FAERS Safety Report 18968630 (Version 1)
Quarter: 2021Q1

REPORT INFORMATION
  Report Type: Spontaneous
  Country: US (occurrence: US)
  Receive Date: 20210304
  Receipt Date: 20210304
  Transmission Date: 20210420
  Serious: Yes (Hospitalization)
  Sender: FDA-Public Use
  Company Number: US-ROCHE-2782438

PATIENT
  Age: 70 Year
  Sex: Female

DRUGS (23)
  1. BRIMONIDINE [Concomitant]
     Active Substance: BRIMONIDINE TARTRATE
  2. HYDROCODONE/ACETAMINOPHEN [Concomitant]
     Active Substance: ACETAMINOPHEN\HYDROCODONE
  3. TORSEMIDE. [Concomitant]
     Active Substance: TORSEMIDE
  4. ATORVASTATIN [Concomitant]
     Active Substance: ATORVASTATIN
  5. CLOPIDOGREL [Concomitant]
     Active Substance: CLOPIDOGREL BISULFATE
  6. DOXYCYCLINE MONOHYDRATE [Concomitant]
     Active Substance: DOXYCYCLINE
  7. FEROSUL [Concomitant]
     Active Substance: FERROUS SULFATE
  8. LEVOTHYROXINE. [Concomitant]
     Active Substance: LEVOTHYROXINE
  9. ESBRIET [Suspect]
     Active Substance: PIRFENIDONE
     Indication: IDIOPATHIC PULMONARY FIBROSIS
     Route: 048
     Dates: start: 20210203
  10. PREDNISONE. [Concomitant]
     Active Substance: PREDNISONE
  11. FAMOTIDINE. [Concomitant]
     Active Substance: FAMOTIDINE
  12. HUMULIN N [Concomitant]
     Active Substance: INSULIN HUMAN
  13. LATANOPROST. [Concomitant]
     Active Substance: LATANOPROST
  14. METOPROLOL TARTRATE. [Concomitant]
     Active Substance: METOPROLOL TARTRATE
  15. TRAZODONE [Concomitant]
     Active Substance: TRAZODONE HYDROCHLORIDE
  16. ROSUVASTATIN. [Concomitant]
     Active Substance: ROSUVASTATIN
  17. IRBESARTAN. [Concomitant]
     Active Substance: IRBESARTAN
  18. PANTOPRAZOLE [Concomitant]
     Active Substance: PANTOPRAZOLE
  19. AZATHIOPRINE. [Concomitant]
     Active Substance: AZATHIOPRINE
  20. POTASSIUM CHLORIDE ER [Concomitant]
     Active Substance: POTASSIUM CHLORIDE
  21. RANOLAZINE. [Concomitant]
     Active Substance: RANOLAZINE
  22. TRIMETHOPRIM SULFAMETHOXAZOLE [Concomitant]
     Active Substance: SULFAMETHOXAZOLE\TRIMETHOPRIM
  23. CARVEDILOL. [Concomitant]
     Active Substance: CARVEDILOL

REACTIONS (1)
  - Lung disorder [Unknown]

NARRATIVE: CASE EVENT DATE: 20210215
